FAERS Safety Report 25977861 (Version 1)
Quarter: 2025Q4

REPORT INFORMATION
  Report Type: Spontaneous
  Country: EU (occurrence: EU)
  Receive Date: 20251030
  Receipt Date: 20251030
  Transmission Date: 20260118
  Serious: Yes (Hospitalization, Other)
  Sender: UNITED THERAPEUTICS
  Company Number: None

PATIENT
  Age: 2 Year
  Weight: 14.7 kg

DRUGS (7)
  1. TREPROSTINIL SODIUM [Suspect]
     Active Substance: TREPROSTINIL SODIUM
     Indication: Pulmonary arterial hypertension
     Dosage: 0.0175 ?G/KG, CONTINUING
  2. TREPROSTINIL SODIUM [Suspect]
     Active Substance: TREPROSTINIL SODIUM
     Dosage: UNK (DOSE INCREASED), CONTINUING
  3. TREPROSTINIL SODIUM [Suspect]
     Active Substance: TREPROSTINIL SODIUM
     Dosage: UNK, CONTINUING
  4. SILDENAFIL CITRATE [Concomitant]
     Active Substance: SILDENAFIL CITRATE
     Indication: Product used for unknown indication
     Dosage: UNK
  5. BOSENTAN [Concomitant]
     Active Substance: BOSENTAN
     Indication: Product used for unknown indication
     Dosage: UNK
  6. DILTIAZEM HYDROCHLORIDE [Concomitant]
     Active Substance: DILTIAZEM HYDROCHLORIDE
     Indication: Product used for unknown indication
     Dosage: UNK
  7. SODIUM FEREDETATE [Concomitant]
     Active Substance: SODIUM FEREDETATE
     Indication: Product used for unknown indication
     Dosage: UNK (0.68)

REACTIONS (1)
  - Hypoxia [Recovered/Resolved]
